FAERS Safety Report 6844611-2 (Version None)
Quarter: 2010Q3

REPORT INFORMATION
  Report Type: 
  Country: None (occurrence: None)
  Receive Date: 20100715
  Receipt Date: 20100708
  Transmission Date: 20110219
  Serious: Yes (Other)
  Sender: FDA-Public Use
  Company Number: US-SANOFI-AVENTIS-2010SA040332

PATIENT
  Age: 63 Year
  Sex: Female

DRUGS (5)
  1. LANTUS [Suspect]
     Indication: TYPE 2 DIABETES MELLITUS
     Dosage: DOSE:42 UNIT(S)
     Route: 058
     Dates: start: 20080101
  2. OPTICLICK [Suspect]
     Dates: start: 20080101
  3. NOVOLOG [Concomitant]
     Dosage: SLIDING SCALE
  4. LASIX [Concomitant]
     Route: 065
  5. POTASSIUM CHLORIDE [Concomitant]
     Route: 065

REACTIONS (1)
  - BUNION OPERATION [None]
